FAERS Safety Report 15906028 (Version 1)
Quarter: 2019Q1

REPORT INFORMATION
  Report Type: Spontaneous
  Country: US (occurrence: US)
  Receive Date: 20190111
  Receipt Date: 20190111
  Transmission Date: 20190417
  Serious: No
  Sender: FDA-Public Use
  Company Number: None

PATIENT
  Age: 48 Year
  Sex: Female
  Weight: 95.71 kg

DRUGS (1)
  1. OTEZLA [Suspect]
     Active Substance: APREMILAST
     Indication: PSORIATIC ARTHROPATHY
     Dosage: TAKE 30MG (1 TABLET) BY MOUTH ONCE EVERY DAY AS DIRECTED
     Route: 048
     Dates: start: 201806

REACTIONS (1)
  - Chronic obstructive pulmonary disease [None]
